FAERS Safety Report 4867048-4 (Version None)
Quarter: 2005Q4

REPORT INFORMATION
  Report Type: 
  Country: None (occurrence: None)
  Receive Date: 20051222
  Receipt Date: 20051214
  Transmission Date: 20060501
  Serious: Yes (Other)
  Sender: FDA-Public Use
  Company Number: 2005-12-0649

PATIENT
  Sex: Female

DRUGS (1)
  1. REBETOL [Suspect]
     Dosage: ORAL
     Route: 048

REACTIONS (1)
  - PSYCHOTIC DISORDER [None]
